FAERS Safety Report 4966110-5 (Version None)
Quarter: 2006Q2

REPORT INFORMATION
  Report Type: 
  Country: None (occurrence: None)
  Receive Date: 20060403
  Receipt Date: 20060324
  Transmission Date: 20061013
  Serious: Yes (Hospitalization)
  Sender: FDA-Public Use
  Company Number: 2006040911

PATIENT
  Age: 75 Year
  Sex: Male

DRUGS (1)
  1. ATORVASTATIN CALCIUM [Suspect]
     Indication: DYSLIPIDAEMIA
     Dosage: 20 MG (20 MG, 1 IN 1 D), ORAL
     Route: 048
     Dates: start: 20051001

REACTIONS (5)
  - CORONARY ARTERY RESTENOSIS [None]
  - HAEMOTHORAX [None]
  - POST PROCEDURAL COMPLICATION [None]
  - SHOCK [None]
  - SURGICAL PROCEDURE REPEATED [None]
